FAERS Safety Report 19460069 (Version 1)
Quarter: 2021Q2

REPORT INFORMATION
  Report Type: Spontaneous
  Country: DE (occurrence: DE)
  Receive Date: 20210625
  Receipt Date: 20210625
  Transmission Date: 20210717
  Serious: Yes (Hospitalization, Other)
  Sender: FDA-Public Use
  Company Number: DE-HETERO-HET2021DE01273

PATIENT
  Age: 41 Year
  Sex: Female
  Weight: 60 kg

DRUGS (6)
  1. FYCOMPA [Suspect]
     Active Substance: PERAMPANEL
     Dosage: 3?4 12 MG, QD
     Route: 048
     Dates: start: 20210212, end: 20210212
  2. LACOSAMIDE. [Suspect]
     Active Substance: LACOSAMIDE
     Indication: PRODUCT USED FOR UNKNOWN INDICATION
     Dosage: 1500 MG, QD
     Route: 065
  3. LACOSAMIDE. [Suspect]
     Active Substance: LACOSAMIDE
     Dosage: 1000 MG, QD
     Route: 065
  4. LEVETIRACETAM. [Suspect]
     Active Substance: LEVETIRACETAM
     Indication: PRODUCT USED FOR UNKNOWN INDICATION
     Dosage: 1000 MG, BID
     Route: 065
     Dates: start: 20210211
  5. FYCOMPA [Suspect]
     Active Substance: PERAMPANEL
     Indication: PRODUCT USED FOR UNKNOWN INDICATION
     Dosage: 12 MG, QD
     Route: 048
     Dates: start: 20210211
  6. LEVETIRACETAM. [Suspect]
     Active Substance: LEVETIRACETAM
     Dosage: 2000 MG, QD
     Route: 065
     Dates: start: 20210212, end: 20210212

REACTIONS (7)
  - Intentional overdose [Recovered/Resolved]
  - Restlessness [Unknown]
  - Hypotension [Recovered/Resolved]
  - Agitation [Recovering/Resolving]
  - Dehydration [Unknown]
  - Abnormal behaviour [Unknown]
  - Suicidal ideation [Unknown]

NARRATIVE: CASE EVENT DATE: 202102
